FAERS Safety Report 15202323 (Version 2)
Quarter: 2020Q4

REPORT INFORMATION
  Report Type: Report from Study
  Country: DE (occurrence: DE)
  Receive Date: 20180726
  Receipt Date: 20201211
  Transmission Date: 20210113
  Serious: Yes (Hospitalization, Other)
  Sender: FDA-Public Use
  Company Number: DE-PFIZER INC-2018298729

PATIENT
  Age: 75 Year
  Sex: Male

DRUGS (29)
  1. NIVOLUMAB [Suspect]
     Active Substance: NIVOLUMAB
     Dosage: 87 MG, Q3WK
     Route: 042
     Dates: start: 20170712
  2. NIVOLUMAB [Suspect]
     Active Substance: NIVOLUMAB
     Dosage: 246 MG, UNK
     Route: 042
     Dates: start: 20170901
  3. IPILIMUMAB [Suspect]
     Active Substance: IPILIMUMAB
     Dosage: 261 MG, Q3WK
     Route: 065
     Dates: start: 20170712, end: 20170712
  4. NIVOLUMAB [Suspect]
     Active Substance: NIVOLUMAB
     Dosage: 222 MG, Q2WK
     Route: 042
     Dates: start: 20170531
  5. NIVOLUMAB [Suspect]
     Active Substance: NIVOLUMAB
     Dosage: 243 MG, UNK
     Route: 042
     Dates: start: 20180109
  6. LOPERAMIDE HYDROCHLORIDE. [Concomitant]
     Active Substance: LOPERAMIDE HYDROCHLORIDE
     Route: 065
  7. MOMETASONE FUROATE. [Concomitant]
     Active Substance: MOMETASONE FUROATE
     Dosage: UNK
     Route: 065
     Dates: start: 20180419
  8. NIVOLUMAB [Suspect]
     Active Substance: NIVOLUMAB
     Dosage: 243 MG, UNK
     Route: 042
     Dates: start: 20180123
  9. IPILIMUMAB [Suspect]
     Active Substance: IPILIMUMAB
     Dosage: 258 MG, Q3WK
     Dates: start: 20170621, end: 20170621
  10. PREDNISOLONE HYDROGEN SUCCINATE [Concomitant]
     Active Substance: PREDNISOLONE
     Route: 065
  11. INFLIXIMAB [Concomitant]
     Active Substance: INFLIXIMAB
     Route: 065
  12. FUROSEMIDE. [Concomitant]
     Active Substance: FUROSEMIDE
     Dosage: 80 MG
     Dates: start: 20170215, end: 20170920
  13. NIVOLUMAB [Suspect]
     Active Substance: NIVOLUMAB
     Indication: MALIGNANT MELANOMA
     Dosage: 86 MG, Q3WK
     Route: 042
     Dates: start: 20170531, end: 20170531
  14. NIVOLUMAB [Suspect]
     Active Substance: NIVOLUMAB
     Dosage: 86 MG, Q3WK
     Route: 042
     Dates: start: 20170621, end: 20170621
  15. DEXAMETHASON [Concomitant]
     Active Substance: DEXAMETHASONE
     Dosage: 4 MG, QD
     Route: 048
     Dates: start: 20171207
  16. LAUROMACROGOL 400 [Concomitant]
     Active Substance: POLIDOCANOL
     Dosage: UNK
     Route: 065
  17. TOREMIFENI DIHYDROGENOCITRAS [Concomitant]
     Dosage: 10 MG
     Route: 042
  18. NIVOLUMAB [Suspect]
     Active Substance: NIVOLUMAB
     Dosage: 246 MG, UNK
     Route: 042
     Dates: start: 20171024
  19. NIVOLUMAB [Suspect]
     Active Substance: NIVOLUMAB
     Dosage: 222 MG, UNK
     Route: 042
     Dates: start: 20171122
  20. CARBIMAZOLE [Suspect]
     Active Substance: CARBIMAZOLE
     Dosage: UNK
  21. SODIUM CHLORIDE. [Concomitant]
     Active Substance: SODIUM CHLORIDE
     Route: 065
  22. NIVOLUMAB [Suspect]
     Active Substance: NIVOLUMAB
     Dosage: 222 MG, UNK
     Route: 042
     Dates: start: 20171108
  23. IPILIMUMAB [Suspect]
     Active Substance: IPILIMUMAB
     Indication: MALIGNANT MELANOMA
     Dosage: 258 MG, Q3WK
     Dates: start: 20170531, end: 20170531
  24. IBUPROFEN. [Suspect]
     Active Substance: IBUPROFEN
     Route: 065
  25. NIVOLUMAB [Suspect]
     Active Substance: NIVOLUMAB
     Dosage: 219 MG, UNK
     Route: 042
     Dates: start: 20171206
  26. NIVOLUMAB [Suspect]
     Active Substance: NIVOLUMAB
     Dosage: 219.6 MG, UNK
     Route: 042
     Dates: start: 20171220
  27. PREDNISOLONE. [Concomitant]
     Active Substance: PREDNISOLONE
     Route: 065
  28. DEXAMETHASON [Concomitant]
     Active Substance: DEXAMETHASONE
     Dosage: 8 MG, QD
     Route: 048
     Dates: start: 20171117, end: 20171122
  29. POLIDOCANOL. [Concomitant]
     Active Substance: POLIDOCANOL
     Dosage: UNK

REACTIONS (18)
  - Left ventricular dysfunction [Not Recovered/Not Resolved]
  - Rash maculo-papular [Recovered/Resolved]
  - Fall [Recovered/Resolved]
  - Hypersensitivity [Recovered/Resolved]
  - Aphasia [Unknown]
  - Dehydration [Recovered/Resolved]
  - Pruritus [Unknown]
  - Hypotension [Recovered/Resolved]
  - Hypocalcaemia [Recovered/Resolved]
  - Inappropriate antidiuretic hormone secretion [Recovered/Resolved]
  - Decreased appetite [Unknown]
  - Vertigo [Recovered/Resolved]
  - Diarrhoea [Not Recovered/Not Resolved]
  - Hyperthyroidism [Recovered/Resolved]
  - Off label use [Unknown]
  - Urticaria [Recovered/Resolved]
  - Fatigue [Recovered/Resolved]
  - Colitis [Recovered/Resolved]

NARRATIVE: CASE EVENT DATE: 20170604
